FAERS Safety Report 18716597 (Version 1)
Quarter: 2021Q1

REPORT INFORMATION
  Report Type: Spontaneous
  Country: US (occurrence: US)
  Receive Date: 20210108
  Receipt Date: 20210108
  Transmission Date: 20210419
  Serious: Yes (Other)
  Sender: FDA-Public Use
  Company Number: US-BAYER-2021-016180

PATIENT

DRUGS (1)
  1. CIPRO [Suspect]
     Active Substance: CIPROFLOXACIN HYDROCHLORIDE
     Indication: ENTEROCOLITIS INFECTIOUS
     Dosage: UNK

REACTIONS (13)
  - Rash [None]
  - Fatigue [None]
  - Diabetes mellitus [None]
  - Tendon rupture [None]
  - Pain in extremity [None]
  - Tooth loss [None]
  - Chronic obstructive pulmonary disease [None]
  - Tendonitis [None]
  - Asthenia [None]
  - Muscle spasms [None]
  - Peripheral coldness [None]
  - Pain management [None]
  - Gait inability [None]
